FAERS Safety Report 7884680-4 (Version None)
Quarter: 2011Q4

REPORT INFORMATION
  Report Type: 
  Country: None (occurrence: None)
  Receive Date: 20111102
  Receipt Date: 20111027
  Transmission Date: 20120403
  Serious: Yes (Other)
  Sender: FDA-Public Use
  Company Number: AU-PFIZER INC-2011227255

PATIENT
  Age: 63 Year
  Sex: Male
  Weight: 94 kg

DRUGS (3)
  1. ACETAMINOPHEN [Concomitant]
  2. OXYCONTIN [Suspect]
     Indication: PAIN
     Dosage: 20 MG, 2X/DAY
     Route: 048
  3. SUTENT [Suspect]
     Indication: RENAL CANCER
     Dosage: 50 MG, 1X/DAY
     Route: 048
     Dates: start: 20110907

REACTIONS (10)
  - DIARRHOEA [None]
  - PRURITUS [None]
  - VOMITING [None]
  - JAUNDICE [None]
  - DECREASED APPETITE [None]
  - ARTHRALGIA [None]
  - FATIGUE [None]
  - CONSTIPATION [None]
  - NAUSEA [None]
  - PAIN [None]
